FAERS Safety Report 4824810-1 (Version None)
Quarter: 2005Q4

REPORT INFORMATION
  Report Type: 
  Country: None (occurrence: None)
  Receive Date: 20051110
  Receipt Date: 20050901
  Transmission Date: 20060501
  Serious: Yes (Hospitalization)
  Sender: FDA-Public Use
  Company Number: FR-SANOFI-SYNTHELABO-A02200502327

PATIENT
  Age: 67 Year
  Sex: Female

DRUGS (7)
  1. PLAVIX [Suspect]
     Indication: DRUG USE FOR UNKNOWN INDICATION
     Route: 048
     Dates: end: 20050510
  2. FOSAMAX [Suspect]
     Indication: DRUG USE FOR UNKNOWN INDICATION
     Route: 048
     Dates: start: 20050426, end: 20050510
  3. AMLOR [Suspect]
     Indication: DRUG USE FOR UNKNOWN INDICATION
     Route: 048
     Dates: end: 20050510
  4. EBIXA [Concomitant]
     Route: 048
     Dates: start: 20040923
  5. LEVOTHYROX [Concomitant]
     Route: 048
  6. HYDROCORTISONE [Concomitant]
     Route: 048
  7. OROCAL D3 [Concomitant]
     Indication: DRUG USE FOR UNKNOWN INDICATION
     Dosage: UNK
     Route: 048

REACTIONS (3)
  - MALNUTRITION [None]
  - OSTEONECROSIS [None]
  - THROAT IRRITATION [None]
